FAERS Safety Report 8790847 (Version 1)
Quarter: 2012Q4

REPORT INFORMATION
  Report Type: Spontaneous
  Country: TH (occurrence: None)
  Receive Date: 20120910
  Receipt Date: 20120910
  Transmission Date: 20130627
  Serious: Yes (Other)
  Sender: FDA-Public Use
  Company Number: DSA_59375_2012

PATIENT
  Age: 34 Year
  Sex: Female

DRUGS (7)
  1. FLUOROURACIL (FLUOROURACIL) [Suspect]
     Indication: CHORIOCARCINOMA
     Dosage: 1000 mg/m2; daily intravenous, (original dose reduced to 20% intravenous)
  2. ETOPOSIDE [Suspect]
     Dosage: df
  3. ACTINOMYCIN D [Suspect]
     Dosage: 0.5 mg/m2; daily
  4. METHOTREXATE [Concomitant]
  5. CISPLATIN [Concomitant]
  6. IFOSFAMIDE [Concomitant]
  7. ACTINOMYCIN D [Concomitant]

REACTIONS (4)
  - Febrile neutropenia [None]
  - Mucosal inflammation [None]
  - Anaemia [None]
  - Hypersensitivity [None]
